FAERS Safety Report 8582792 (Version 2)
Quarter: 2013Q2

REPORT INFORMATION
  Report Type: Report from Study
  Country: GB (occurrence: GB)
  Receive Date: 20120529
  Receipt Date: 20130529
  Transmission Date: 20140414
  Serious: Yes (Hospitalization)
  Sender: FDA-Public Use
  Company Number: GB-UCBSA-057923

PATIENT
  Age: 74 Year
  Sex: Male
  Weight: 71 kg

DRUGS (11)
  1. CERTOLIZUMAB PEGOL [Suspect]
     Indication: RHEUMATOID ARTHRITIS
     Route: 058
     Dates: start: 20101230
  2. BUPRENORPHINE [Concomitant]
  3. CALCICHEW [Concomitant]
  4. OMEPRAZOLE [Concomitant]
  5. FLECAINIDE [Concomitant]
  6. SYMBICORT [Concomitant]
  7. PARACETAMOL [Concomitant]
  8. ZOPICLONE [Concomitant]
  9. GABAPENTIN [Concomitant]
  10. SALBUTAMOL SULPHATE [Concomitant]
  11. GLANDOSANE [Concomitant]

REACTIONS (1)
  - Lung infection [Recovered/Resolved]
